FAERS Safety Report 5316478-5 (Version None)
Quarter: 2007Q2

REPORT INFORMATION
  Report Type: 
  Country: None (occurrence: None)
  Receive Date: 20070430
  Receipt Date: 20070417
  Transmission Date: 20071010
  Serious: Yes (Hospitalization)
  Sender: FDA-Public Use
  Company Number: 16357

PATIENT
  Age: 65 Year
  Sex: Female
  Weight: 115 kg

DRUGS (12)
  1. METHYLENE BLUE [Suspect]
     Indication: PARATHYROIDECTOMY
     Dosage: 200 MG IV
     Route: 042
  2. ASPIRIN [Concomitant]
  3. ATENOLOL [Concomitant]
  4. CARBIMAZOLE [Concomitant]
  5. FENTANYL [Concomitant]
  6. METFORMIN HCL [Concomitant]
  7. MIDAZOLAM HCL [Concomitant]
  8. MIXTARD HUMAN 70/30 [Concomitant]
  9. PAROXETINE [Concomitant]
  10. PROPOFOL [Concomitant]
  11. ROCURONIUM BROMIDE [Concomitant]
  12. SIMVASTATIN [Concomitant]

REACTIONS (4)
  - AGITATION [None]
  - CONFUSIONAL STATE [None]
  - RESTLESSNESS [None]
  - SOMNOLENCE [None]
